FAERS Safety Report 5312492-4 (Version None)
Quarter: 2007Q2

REPORT INFORMATION
  Report Type: 
  Country: None (occurrence: None)
  Receive Date: 20070430
  Receipt Date: 20070110
  Transmission Date: 20071010
  Serious: No
  Sender: FDA-Public Use
  Company Number: 2007UW00571

PATIENT
  Sex: Female

DRUGS (1)
  1. NEXIUM [Suspect]
     Route: 048
     Dates: start: 20061201, end: 20070108

REACTIONS (6)
  - DEPRESSED MOOD [None]
  - DRUG INEFFECTIVE [None]
  - ERUCTATION [None]
  - FEELING ABNORMAL [None]
  - SENSATION OF FOREIGN BODY [None]
  - STOMACH DISCOMFORT [None]
